FAERS Safety Report 16988212 (Version 1)
Quarter: 2019Q4

REPORT INFORMATION
  Report Type: Report from Study
  Country: DE (occurrence: DE)
  Receive Date: 20191104
  Receipt Date: 20191104
  Transmission Date: 20200122
  Serious: Yes (Other)
  Sender: FDA-Public Use
  Company Number: DE-AUROBINDO-AUR-APL-2019-070653

PATIENT
  Age: 15 Year
  Sex: Female

DRUGS (2)
  1. ARIPIPRAZOLE TABLETS [Suspect]
     Active Substance: ARIPIPRAZOLE
     Indication: PSYCHOTIC SYMPTOM
     Dosage: 15 MG
     Route: 048
  2. ARIPIPRAZOLE TABLETS [Suspect]
     Active Substance: ARIPIPRAZOLE
     Indication: DEPRESSION
     Dosage: 10 MG
     Route: 048

REACTIONS (3)
  - Antipsychotic drug level below therapeutic [Unknown]
  - Drug ineffective [Unknown]
  - Psychotic symptom [Unknown]
